FAERS Safety Report 6228921-8 (Version None)
Quarter: 2009Q2

REPORT INFORMATION
  Report Type: 
  Country: None (occurrence: None)
  Receive Date: 20090615
  Receipt Date: 20090610
  Transmission Date: 20091009
  Serious: Yes (Hospitalization)
  Sender: FDA-Public Use
  Company Number: US-BRISTOL-MYERS SQUIBB COMPANY-14657993

PATIENT
  Age: 79 Year
  Sex: Male
  Weight: 90 kg

DRUGS (4)
  1. ERBITUX [Suspect]
     Indication: OESOPHAGEAL ADENOCARCINOMA
     Dosage: LAST ADMINISTERED DATE-1JUN09, COURSE NO;1; TOTAL COURSE-1; ON DAYS 1,8,15,22,29 AND 36
     Dates: start: 20090504
  2. TAXOL [Suspect]
     Indication: OESOPHAGEAL ADENOCARCINOMA
     Dosage: LAST ADMINISTERED DATE-1JUN09, COURSE NO;1; TOTAL COURSE-1; ON DAYS 1,8,15,22,29 AND 36
     Dates: start: 20090504
  3. CISPLATIN [Suspect]
     Indication: OESOPHAGEAL ADENOCARCINOMA
     Dosage: LAST ADMINISTERED DATE-1JUN09, COURSE NO;1; TOTAL COURSE-1; ON DAYS 1,8,15,22,29 AND 36
     Dates: start: 20090504
  4. RADIATION THERAPY [Suspect]
     Indication: OESOPHAGEAL ADENOCARCINOMA
     Dosage: LAST TREATMENT-05JUN09 1DF=45GY 180CGY/D FOR 28DAYS NO OF FRACTION-25 ELAPSED DAYS-36
     Dates: start: 20090504

REACTIONS (5)
  - DIARRHOEA [None]
  - DIZZINESS [None]
  - GRANULOCYTE COUNT DECREASED [None]
  - WHITE BLOOD CELL COUNT DECREASED [None]
  - WOUND INFECTION [None]
